FAERS Safety Report 15209872 (Version 3)
Quarter: 2019Q1

REPORT INFORMATION
  Report Type: Report from Study
  Country: CO (occurrence: CO)
  Receive Date: 20180727
  Receipt Date: 20190124
  Transmission Date: 20190417
  Serious: Yes (Hospitalization)
  Sender: FDA-Public Use
  Company Number: PHHY2018CO054506

PATIENT
  Age: 21 Year
  Sex: Female
  Weight: 54 kg

DRUGS (2)
  1. GILENYA [Suspect]
     Active Substance: FINGOLIMOD HYDROCHLORIDE
     Indication: MULTIPLE SCLEROSIS
     Dosage: 0.5 MG, QD
     Route: 048
     Dates: start: 20170804, end: 20181230
  2. SINOVUL [Concomitant]
     Indication: POLYCYSTIC OVARIES
     Dosage: UNK UNK, QD
     Route: 065

REACTIONS (5)
  - Vision blurred [Not Recovered/Not Resolved]
  - Macular oedema [Not Recovered/Not Resolved]
  - Uveitis [Not Recovered/Not Resolved]
  - Blindness [Not Recovered/Not Resolved]
  - Headache [Not Recovered/Not Resolved]

NARRATIVE: CASE EVENT DATE: 20180716
